FAERS Safety Report 24060888 (Version 1)
Quarter: 2024Q3

REPORT INFORMATION
  Report Type: Spontaneous
  Country: US (occurrence: None)
  Receive Date: 20240707
  Receipt Date: 20240707
  Transmission Date: 20241016
  Serious: Yes (Hospitalization)
  Sender: Public
  Company Number: None

PATIENT
  Age: 43 Year
  Sex: Female
  Weight: 99 kg

DRUGS (11)
  1. PAXLOVID [Suspect]
     Active Substance: NIRMATRELVIR\RITONAVIR
     Indication: COVID-19
     Dosage: 3 BLISTER PACK TWICE A DAY ORAL
     Route: 048
     Dates: start: 20240702, end: 20240704
  2. BUSPAR [Suspect]
     Active Substance: BUSPIRONE HYDROCHLORIDE
     Indication: Anxiety
     Dosage: 1 TABLET TWICE A DAY ORAL
     Route: 048
     Dates: start: 20220101, end: 20240704
  3. BUSPAR [Suspect]
     Active Substance: BUSPIRONE HYDROCHLORIDE
     Indication: Depression
  4. DULOXETINE [Concomitant]
     Active Substance: DULOXETINE
  5. TOPIRAMATE [Concomitant]
     Active Substance: TOPIRAMATE
  6. LIOTHYRONINE [Concomitant]
     Active Substance: LIOTHYRONINE
  7. BUSPAR [Concomitant]
     Active Substance: BUSPIRONE HYDROCHLORIDE
  8. TRAZODONE [Concomitant]
     Active Substance: TRAZODONE HYDROCHLORIDE
  9. Bariatric [Concomitant]
  10. VITAMINS [Concomitant]
     Active Substance: VITAMINS
  11. BIOTIN [Concomitant]
     Active Substance: BIOTIN

REACTIONS (6)
  - Dyspnoea [None]
  - Tremor [None]
  - Disorientation [None]
  - Anaemia [None]
  - Panic attack [None]
  - Drug interaction [None]

NARRATIVE: CASE EVENT DATE: 20240702
